FAERS Safety Report 7372174-4 (Version None)
Quarter: 2011Q1

REPORT INFORMATION
  Report Type: 
  Country: None (occurrence: None)
  Receive Date: 20110324
  Receipt Date: 20110317
  Transmission Date: 20110831
  Serious: Yes (Other)
  Sender: FDA-Public Use
  Company Number: B0707969A

PATIENT
  Sex: Male

DRUGS (1)
  1. CIGANON CQ1 [Suspect]
     Dosage: 14MG PER DAY
     Route: 062
     Dates: start: 20110226, end: 20110315

REACTIONS (3)
  - LOSS OF CONSCIOUSNESS [None]
  - VISUAL IMPAIRMENT [None]
  - DIZZINESS [None]
